FAERS Safety Report 15085272 (Version 3)
Quarter: 2018Q3

REPORT INFORMATION
  Report Type: Report from Study
  Country: US (occurrence: US)
  Receive Date: 20180628
  Receipt Date: 20180917
  Transmission Date: 20181010
  Serious: Yes (Death, Hospitalization, Other)
  Sender: FDA-Public Use
  Company Number: US-SHIRE-US201822733

PATIENT
  Age: 59 Year
  Sex: Male

DRUGS (1)
  1. ALFA 1?ANTITRYPSIN; RECOMBINANT [Suspect]
     Active Substance: .ALPHA.1-PROTEINASE INHIBITOR HUMAN
     Indication: ALPHA-1 ANTI-TRYPSIN DEFICIENCY
     Dosage: UNK UNK, 1X/WEEK
     Route: 042

REACTIONS (2)
  - Lung disorder [Fatal]
  - Lung infection [Not Recovered/Not Resolved]

NARRATIVE: CASE EVENT DATE: 20180613
